FAERS Safety Report 4598708-0 (Version None)
Quarter: 2005Q1

REPORT INFORMATION
  Report Type: 
  Country: None (occurrence: None)
  Receive Date: 20050304
  Receipt Date: 20050224
  Transmission Date: 20050727
  Serious: Yes (Other)
  Sender: FDA-Public Use
  Company Number: PHBS2005NL02935

PATIENT
  Age: 85 Year
  Sex: Male

DRUGS (3)
  1. LOPRESOR OROS [Suspect]
     Indication: ATRIAL FIBRILLATION
     Route: 048
  2. SINTROM MITIS [Suspect]
     Indication: ATRIAL FIBRILLATION
     Dosage: 1 MG, UNK
     Route: 048
  3. CARBASALATE CALCIUM [Concomitant]

REACTIONS (1)
  - HEPATIC NECROSIS [None]
